FAERS Safety Report 12208379 (Version 4)
Quarter: 2016Q2

REPORT INFORMATION
  Report Type: Spontaneous
  Country: JP (occurrence: JP)
  Receive Date: 20160324
  Receipt Date: 20160516
  Transmission Date: 20160815
  Serious: Yes (Hospitalization, Other)
  Sender: FDA-Public Use
  Company Number: JP-GILEAD-2016-0203681AA

PATIENT
  Age: 69 Year
  Sex: Female
  Weight: 53.2 kg

DRUGS (2)
  1. HARVONI [Suspect]
     Active Substance: LEDIPASVIR\SOFOSBUVIR
     Indication: HEPATIC CIRRHOSIS
     Dosage: 1 UNK, UNK
     Route: 048
     Dates: start: 20160108, end: 20160331
  2. REBAMIPIDE [Concomitant]
     Active Substance: REBAMIPIDE
     Dosage: 100 MG, QD
     Route: 048

REACTIONS (1)
  - Haemorrhagic hepatic cyst [Recovered/Resolved]

NARRATIVE: CASE EVENT DATE: 20160304
